FAERS Safety Report 6233309-X (Version None)
Quarter: 2009Q2

REPORT INFORMATION
  Report Type: 
  Country: None (occurrence: None)
  Receive Date: 20090617
  Receipt Date: 20090615
  Transmission Date: 20091009
  Serious: Yes (Life-Threatening, Hospitalization, Other)
  Sender: FDA-Public Use
  Company Number: US-GENENTECH-282629

PATIENT
  Sex: Female
  Weight: 72.562 kg

DRUGS (15)
  1. HERCEPTIN [Suspect]
     Indication: BREAST CANCER
     Dosage: 450 MG, SINGLE
     Route: 042
     Dates: start: 20090505, end: 20090505
  2. TAXOTERE [Concomitant]
     Indication: BREAST CANCER
     Dosage: 140 MG, UNK
     Dates: start: 20090505
  3. CARBOPLATIN [Concomitant]
     Indication: BREAST CANCER
     Dosage: 700 MG, UNK
     Dates: start: 20090505
  4. BENADRYL [Concomitant]
     Indication: ERYTHEMA
     Dosage: 25 MG, SINGLE
     Route: 048
     Dates: start: 20090505
  5. BENADRYL [Concomitant]
     Indication: PRURITUS
  6. BENADRYL [Concomitant]
     Indication: BACK PAIN
  7. BENADRYL [Concomitant]
     Indication: SWELLING
  8. SOLU-CORTEF [Concomitant]
     Indication: ERYTHEMA
     Dosage: 100 MG, SINGLE
     Route: 042
     Dates: start: 20090505
  9. SOLU-CORTEF [Concomitant]
     Indication: PRURITUS
  10. SOLU-CORTEF [Concomitant]
     Indication: BACK PAIN
  11. SOLU-CORTEF [Concomitant]
     Indication: SWELLING
  12. TYLENOL (CAPLET) [Concomitant]
     Indication: ERYTHEMA
     Dosage: UNK
     Dates: start: 20090505
  13. TYLENOL (CAPLET) [Concomitant]
     Indication: PRURITUS
  14. TYLENOL (CAPLET) [Concomitant]
     Indication: BACK PAIN
  15. TYLENOL (CAPLET) [Concomitant]
     Indication: SWELLING

REACTIONS (3)
  - PETECHIAE [None]
  - PLATELET COUNT DECREASED [None]
  - PULMONARY OEDEMA [None]
